FAERS Safety Report 9565699 (Version 1)
Quarter: 2013Q3

REPORT INFORMATION
  Report Type: Report from Study
  Country: US (occurrence: US)
  Receive Date: 20130930
  Receipt Date: 20130930
  Transmission Date: 20140515
  Serious: Yes (Other)
  Sender: FDA-Public Use
  Company Number: US-GLAXOSMITHKLINE-A0961429A

PATIENT
  Age: 58 Year
  Sex: Female
  Weight: 67.65 kg

DRUGS (6)
  1. BENLYSTA [Suspect]
     Indication: SYSTEMIC LUPUS ERYTHEMATOSUS
     Dosage: 10MGK CYCLIC
     Route: 042
     Dates: start: 20111130
  2. PREMARIN [Concomitant]
     Dosage: .3MG PER DAY
  3. SYNTHROID [Concomitant]
  4. VITAMIN D [Concomitant]
  5. VITAMIN C [Concomitant]
     Dosage: 1000MG PER DAY
  6. VITAMIN B12 [Concomitant]
     Dosage: 1000MG PER DAY

REACTIONS (6)
  - Cholecystitis infective [Unknown]
  - Nausea [Recovered/Resolved]
  - Pain in extremity [Recovered/Resolved]
  - Chills [Unknown]
  - Abdominal discomfort [Unknown]
  - Nervousness [Unknown]
